FAERS Safety Report 4432018-7 (Version None)
Quarter: 2004Q3

REPORT INFORMATION
  Report Type: 
  Country: None (occurrence: None)
  Receive Date: 20040819
  Receipt Date: 20040809
  Transmission Date: 20050211
  Serious: Yes (Other)
  Sender: FDA-Public Use
  Company Number: M2004-0974

PATIENT
  Age: 37 Year
  Sex: Female

DRUGS (5)
  1. RIMACTANE [Suspect]
     Indication: TUBERCULOSIS
     Dosage: PO
     Route: 048
     Dates: start: 20040223, end: 20040510
  2. EBUTOL [Concomitant]
  3. PYRIDOXAL PHOSPHATE [Concomitant]
  4. FLUNITRAZEPAM [Concomitant]
  5. ISONIAZID [Concomitant]

REACTIONS (8)
  - ANOREXIA [None]
  - CONDITION AGGRAVATED [None]
  - DEPRESSION [None]
  - FEELING ABNORMAL [None]
  - GAMMA-GLUTAMYLTRANSFERASE INCREASED [None]
  - LIVER DISORDER [None]
  - MALAISE [None]
  - PSYCHIATRIC SYMPTOM [None]
